FAERS Safety Report 12524430 (Version 2)
Quarter: 2016Q3

REPORT INFORMATION
  Report Type: Spontaneous
  Country: GB (occurrence: GB)
  Receive Date: 20160704
  Receipt Date: 20160802
  Transmission Date: 20161109
  Serious: Yes (Hospitalization, Disabling)
  Sender: FDA-Public Use
  Company Number: GB-SUN PHARMACEUTICAL INDUSTRIES LTD-2016RR-119629

PATIENT
  Age: 51 Year
  Sex: Female
  Weight: 62 kg

DRUGS (7)
  1. LEVETIRACETAM. [Concomitant]
     Active Substance: LEVETIRACETAM
     Indication: PRODUCT USED FOR UNKNOWN INDICATION
     Dosage: 1000 MG, QID
     Route: 065
  2. KEPPRA [Concomitant]
     Active Substance: LEVETIRACETAM
     Indication: PRODUCT USED FOR UNKNOWN INDICATION
     Route: 065
  3. ATORVASTATIN [Suspect]
     Active Substance: ATORVASTATIN
     Indication: PRODUCT USED FOR UNKNOWN INDICATION
     Dosage: 10 MG, DAILY
     Route: 065
     Dates: start: 20151120
  4. ATORVASTATIN [Suspect]
     Active Substance: ATORVASTATIN
     Indication: PRODUCT USED FOR UNKNOWN INDICATION
     Dosage: 40 MG, DAILY
     Route: 065
     Dates: end: 20160503
  5. ZONISAMIDE. [Concomitant]
     Active Substance: ZONISAMIDE
     Indication: PRODUCT USED FOR UNKNOWN INDICATION
     Dosage: 200MG MORNING, 100MG MIDDAY, 200MG NOCTE
     Route: 065
  6. TEGRETOL XR [Concomitant]
     Active Substance: CARBAMAZEPINE
     Indication: PRODUCT USED FOR UNKNOWN INDICATION
     Route: 065
  7. FRISIUM [Concomitant]
     Active Substance: CLOBAZAM
     Indication: PRODUCT USED FOR UNKNOWN INDICATION
     Dosage: AS NECESSARY
     Route: 065

REACTIONS (17)
  - Syncope [Unknown]
  - Dizziness [Unknown]
  - Asthenia [Unknown]
  - Change in seizure presentation [Unknown]
  - Visual impairment [Unknown]
  - Muscular weakness [Unknown]
  - Muscle rigidity [Unknown]
  - Epilepsy [Unknown]
  - Speech disorder [Unknown]
  - Paralysis [Unknown]
  - Nasopharyngitis [Unknown]
  - Tonic clonic movements [Unknown]
  - Influenza like illness [Unknown]
  - Vision blurred [Unknown]
  - Balance disorder [Unknown]
  - Fatigue [Unknown]
  - Amnesia [Unknown]

NARRATIVE: CASE EVENT DATE: 20151120
